FAERS Safety Report 5337300-7 (Version None)
Quarter: 2007Q1

REPORT INFORMATION
  Report Type: 
  Country: None (occurrence: None)
  Receive Date: 20070315
  Receipt Date: 20061011
  Transmission Date: 20070707
  Serious: Yes (Other)
  Sender: FDA-Public Use
  Company Number: PHEH2006US12745

PATIENT
  Age: 4 Year
  Sex: Male

DRUGS (2)
  1. TRILEPTAL [Suspect]
     Indication: CONVULSION
     Dosage: SEE IMAGE
     Dates: start: 20061001, end: 20061008
  2. TRILEPTAL [Suspect]
     Indication: CONVULSION
     Dosage: SEE IMAGE
     Dates: start: 20061008, end: 20061010

REACTIONS (3)
  - ACCIDENTAL OVERDOSE [None]
  - INSOMNIA [None]
  - RASH [None]
